FAERS Safety Report 21607224 (Version 1)
Quarter: 2022Q4

REPORT INFORMATION
  Report Type: Spontaneous
  Country: GB (occurrence: GB)
  Receive Date: 20221117
  Receipt Date: 20221117
  Transmission Date: 20230113
  Serious: Yes (Other)
  Sender: FDA-Public Use
  Company Number: GB-MHRA-MED-202211011211296690-TYKMC

PATIENT
  Age: 25 Year
  Sex: Female

DRUGS (4)
  1. OLANZAPINE [Suspect]
     Active Substance: OLANZAPINE
     Indication: Adverse drug reaction
     Dosage: 15MG (5MG IN MORNING + 10MG AT NIGHT); ;
     Route: 065
     Dates: start: 2022, end: 20221026
  2. DULOXETINE [Concomitant]
     Active Substance: DULOXETINE
     Indication: Product used for unknown indication
     Dosage: UNK
     Route: 065
  3. MERCURY PHARMS FERROUS FUMARATE [Concomitant]
     Indication: Product used for unknown indication
     Dosage: UNK
     Route: 065
  4. SENNA [Concomitant]
     Active Substance: SENNA LEAF\SENNOSIDES\SENNOSIDES A AND B
     Indication: Product used for unknown indication
     Dosage: UNK
     Route: 065

REACTIONS (1)
  - Urinary retention [Recovered/Resolved]
